FAERS Safety Report 8401934-3 (Version None)
Quarter: 2012Q2

REPORT INFORMATION
  Report Type: 
  Country: None (occurrence: None)
  Receive Date: 20120601
  Receipt Date: 20120521
  Transmission Date: 20120825
  Serious: Yes (Hospitalization)
  Sender: FDA-Public Use
  Company Number: DE-PFIZER INC-2012115442

PATIENT
  Age: 50 Year
  Sex: Male

DRUGS (17)
  1. PREGABALIN [Suspect]
     Dosage: UNK
     Route: 048
     Dates: start: 20120508
  2. CITALOPRAM HYDROBROMIDE [Suspect]
     Dosage: UNK
     Route: 048
     Dates: start: 20120502
  3. TOPIRAMATE [Suspect]
     Dosage: UNK
     Route: 048
     Dates: start: 20120508
  4. LORAZEPAM [Suspect]
     Dosage: UNK
     Route: 048
     Dates: start: 20120502
  5. SILODOSIN [Suspect]
     Dosage: UNK
     Route: 048
     Dates: start: 20120508
  6. CITALOPRAM [Suspect]
     Dosage: UNK
     Route: 048
     Dates: start: 20120508
  7. MIRTAZAPINE [Suspect]
     Dosage: UNK
     Route: 048
     Dates: start: 20120508
  8. UBRETID [Suspect]
     Dosage: UNK
     Route: 048
     Dates: start: 20120502
  9. UBRETID [Suspect]
     Dosage: UNK
     Route: 048
     Dates: start: 20120508
  10. IBUPROFEN [Suspect]
     Dosage: UNK
     Route: 048
     Dates: start: 20120502
  11. PREGABALIN [Suspect]
     Dosage: UNK
     Route: 048
     Dates: start: 20120502
  12. PANTOPRAZOLE [Suspect]
     Dosage: UNK
     Route: 048
     Dates: start: 20120502
  13. DULOXETINE [Suspect]
     Dosage: UNK
     Route: 048
     Dates: start: 20120502
  14. DULOXETINE HYDROCHLORIDE [Suspect]
     Dosage: UNK
     Route: 048
     Dates: start: 20120508
  15. LISINOPRIL [Suspect]
     Dosage: UNK
     Route: 048
     Dates: start: 20120502
  16. METAMIZOLE [Suspect]
     Dosage: UNK
     Route: 048
     Dates: start: 20120502
  17. MIRTAZAPINE [Suspect]
     Dosage: UNK
     Route: 048
     Dates: start: 20120502

REACTIONS (3)
  - INTENTIONAL OVERDOSE [None]
  - FATIGUE [None]
  - SUICIDE ATTEMPT [None]
